FAERS Safety Report 24994317 (Version 1)
Quarter: 2025Q1

REPORT INFORMATION
  Report Type: Spontaneous
  Country: GB (occurrence: GB)
  Receive Date: 20250221
  Receipt Date: 20250221
  Transmission Date: 20250409
  Serious: Yes (Other)
  Sender: ACCORD
  Company Number: None

PATIENT
  Age: 72 Year
  Sex: Male

DRUGS (17)
  1. OSELTAMIVIR [Suspect]
     Active Substance: OSELTAMIVIR
     Indication: Product used for unknown indication
  2. ENOXAPARIN [Suspect]
     Active Substance: ENOXAPARIN
     Indication: Product used for unknown indication
  3. DOCUSATE [Suspect]
     Active Substance: DOCUSATE
     Indication: Product used for unknown indication
  4. LANTUS [Concomitant]
     Active Substance: INSULIN GLARGINE
  5. ALBUTEROL [Concomitant]
     Active Substance: ALBUTEROL
  6. PREGABALIN [Concomitant]
     Active Substance: PREGABALIN
  7. MELATONIN [Concomitant]
     Active Substance: MELATONIN
  8. ACETYLCYSTEINE [Concomitant]
     Active Substance: ACETYLCYSTEINE
     Dosage: 600 MG EFFERVESCENT TABLETS SUGAR FREE ONE TO BE TAKEN DAILY
  9. CALCIUM CARBONATE\CHOLECALCIFEROL [Concomitant]
     Active Substance: CALCIUM CARBONATE\CHOLECALCIFEROL
     Dosage: 1500 MG / 400 UNIT CHEWABLE TABLETS TAKE ONE TWICE DAILY
  10. OMEPRAZOLE [Concomitant]
     Active Substance: OMEPRAZOLE
  11. HYDROCORTISONE [Concomitant]
     Active Substance: HYDROCORTISONE
     Dosage: 10 MG TABLETS ONE TO BE TAKEN THREE TIMES A DAY - DOSE DOUBLED?WHILST ON ABX
  12. CLONAZEPAM [Concomitant]
     Active Substance: CLONAZEPAM
     Dosage: AT NIGHT AS PER CONSULTANT
  13. FLUDROCORTISONE [Concomitant]
     Active Substance: FLUDROCORTISONE
     Dosage: 100 MICROGRAM TABLETS ONE AND A HALF TABLETS TO BE TAKEN DAILY
  14. ATORVASTATIN [Concomitant]
     Active Substance: ATORVASTATIN
  15. FLUTICASONE FUROATE\UMECLIDINIUM BROMIDE\VILANTEROL TRIFENATATE [Concomitant]
     Active Substance: FLUTICASONE FUROATE\UMECLIDINIUM BROMIDE\VILANTEROL TRIFENATATE
     Dosage: 92 / 55 / 22 MICROGRAMS / DOSE DRY POWDER INHALER ONE PUFF TO BE?INHALED ONCE A DAY - POD
  16. INSULIN LISPRO [Concomitant]
     Active Substance: INSULIN LISPRO
     Dosage: 100 UNITS / ML SOLUTION FOR INJECTION 3 ML PRE-FILLED PENS FOR SUBCUTANEOUS INJECTION
  17. MELATONIN [Concomitant]
     Active Substance: MELATONIN

REACTIONS (1)
  - Thrombocytopenia [Unknown]
